FAERS Safety Report 5914193-8 (Version None)
Quarter: 2008Q3

REPORT INFORMATION
  Report Type: 
  Country: None (occurrence: None)
  Receive Date: 20080909
  Receipt Date: 20080505
  Transmission Date: 20090109
  Serious: Yes (Other)
  Sender: FDA-Public Use
  Company Number: 163-20785-08011125

PATIENT
  Age: 72 Year
  Sex: Female

DRUGS (5)
  1. THALOMID [Suspect]
     Indication: MULTIPLE MYELOMA
     Dosage: 400 MG, 4 IN 1 D, ORAL
     Route: 048
     Dates: start: 20070124, end: 20080111
  2. PEPCID AC [Concomitant]
  3. LASIX [Concomitant]
  4. POTASSIUM (POTASSIUM) [Concomitant]
  5. BACTRIM DS [Concomitant]

REACTIONS (5)
  - ANOREXIA [None]
  - DEEP VEIN THROMBOSIS [None]
  - GASTROENTERITIS [None]
  - SEDATION [None]
  - TREMOR [None]
